FAERS Safety Report 10051289 (Version 1)
Quarter: 2014Q2

REPORT INFORMATION
  Report Type: Spontaneous
  Country: US (occurrence: US)
  Receive Date: 20140401
  Receipt Date: 20140401
  Transmission Date: 20141212
  Serious: No
  Sender: FDA-Public Use
  Company Number: US-PFIZER INC-2014089067

PATIENT
  Age: 45 Year
  Sex: Male
  Weight: 88.43 kg

DRUGS (4)
  1. ZOLOFT [Suspect]
     Indication: ANXIETY
     Dosage: UNK
  2. ZOLOFT [Suspect]
     Dosage: 25 MG, 1X/DAY
     Dates: start: 201403
  3. VIAGRA [Suspect]
     Dosage: 100 MG, UNK
  4. TRAZODONE [Concomitant]
     Dosage: UNK

REACTIONS (1)
  - Erectile dysfunction [Unknown]
